FAERS Safety Report 10187096 (Version 1)
Quarter: 2014Q2

REPORT INFORMATION
  Report Type: Spontaneous
  Country: ES (occurrence: ES)
  Receive Date: 20140522
  Receipt Date: 20140522
  Transmission Date: 20141212
  Serious: Yes (Hospitalization)
  Sender: FDA-Public Use
  Company Number: ES-RANBAXY-2014RR-81331

PATIENT
  Age: 11 Month
  Sex: Female

DRUGS (1)
  1. AMOXICILINA MUNDOGEN 250 MG SUSPENSION EFG [Suspect]
     Indication: SINUSITIS
     Dosage: ONE 120 ML BOTTLE
     Route: 048
     Dates: start: 20140303, end: 20140310

REACTIONS (4)
  - Urticaria [Recovering/Resolving]
  - Diffuse vasculitis [Recovering/Resolving]
  - Adverse reaction [Recovering/Resolving]
  - Urticaria [Recovering/Resolving]
